FAERS Safety Report 7860025-0 (Version None)
Quarter: 2011Q4

REPORT INFORMATION
  Report Type: 
  Country: None (occurrence: None)
  Receive Date: 20111025
  Receipt Date: 20111012
  Transmission Date: 20120403
  Serious: Yes (Death, Hospitalization, Other)
  Sender: FDA-Public Use
  Company Number: 2011244624

PATIENT
  Age: 60 Year
  Sex: Male

DRUGS (15)
  1. BLINDED THERAPY (BLINDED THERAPY) [Suspect]
     Indication: TYPE 2 DIABETES MELLITUS
     Dates: start: 20110414
  2. NOVOLOG [Suspect]
     Indication: DIABETES MELLITUS
     Dosage: 8 IU
     Dates: start: 20110711, end: 20110719
  3. FUROSEMIDE [Concomitant]
  4. DALTEPARIN SODIUM [Suspect]
     Dosage: 1500 UNITS DAILY
     Dates: start: 20110711
  5. ASPIRIN [Suspect]
     Dosage: 75 MG
     Dates: end: 20110722
  6. CLOPIDOGREL [Suspect]
     Dosage: 75 MG
  7. OXYCONTIN [Concomitant]
  8. ASPIRIN [Concomitant]
  9. INSULATARD NPH HUMAN [Suspect]
     Indication: DIABETES MELLITUS
     Dosage: 8 IU
     Dates: start: 20110718
  10. IMPORTAL (LACTITOL) [Concomitant]
  11. LACTULOSE [Suspect]
     Dates: start: 20110720, end: 20110725
  12. OMEPRAZOLE [Concomitant]
  13. SPIRONOLACTONE [Concomitant]
  14. METFORMIN HCL [Suspect]
     Indication: TYPE 2 DIABETES MELLITUS
     Dosage: 1.5 G
     Dates: end: 20110711
  15. CILAXORAL (SODIUM PICOSULFATE) [Suspect]
     Dates: start: 20110712, end: 20110725

REACTIONS (13)
  - PULMONARY EMBOLISM [None]
  - HAEMATURIA [None]
  - PORTAL VEIN THROMBOSIS [None]
  - SUDDEN CARDIAC DEATH [None]
  - INGUINAL HERNIA [None]
  - PANCREATITIS ACUTE [None]
  - ASCITES [None]
  - HEPATIC CIRRHOSIS [None]
  - PORTAL HYPERTENSION [None]
  - DILATATION VENTRICULAR [None]
  - GASTRIC VARICES [None]
  - CONSTIPATION [None]
  - NAUSEA [None]
